FAERS Safety Report 21985146 (Version 1)
Quarter: 2023Q1

REPORT INFORMATION
  Report Type: Spontaneous
  Country: US (occurrence: None)
  Receive Date: 20230210
  Receipt Date: 20230210
  Transmission Date: 20230418
  Serious: Yes (Other)
  Sender: FDA-Public Use
  Company Number: None

PATIENT
  Age: 84 Year
  Sex: Female
  Weight: 52.06 kg

DRUGS (2)
  1. RISPERIDONE [Suspect]
     Active Substance: RISPERIDONE
     Indication: Agitation
     Dosage: FREQUENCY : DAILY;?
     Route: 048
     Dates: start: 20221013, end: 20221213
  2. TRAMADOL [Concomitant]
     Active Substance: TRAMADOL

REACTIONS (3)
  - Somnolence [None]
  - Urinary retention [None]
  - Therapy cessation [None]

NARRATIVE: CASE EVENT DATE: 20221212
